FAERS Safety Report 18361962 (Version 1)
Quarter: 2020Q4

REPORT INFORMATION
  Report Type: Spontaneous
  Country: BR (occurrence: BR)
  Receive Date: 20201008
  Receipt Date: 20201008
  Transmission Date: 20210114
  Serious: Yes (Hospitalization)
  Sender: FDA-Public Use
  Company Number: BR-ELI_LILLY_AND_COMPANY-BR202009013726

PATIENT
  Age: 85 Year
  Sex: Female

DRUGS (1)
  1. BASAGLAR [Suspect]
     Active Substance: INSULIN GLARGINE
     Indication: DIABETES MELLITUS
     Dosage: 16 U, THREE TIMES A DAY
     Route: 065

REACTIONS (3)
  - Cardiac disorder [Unknown]
  - Product storage error [Unknown]
  - Blood cholesterol increased [Unknown]
